FAERS Safety Report 10218224 (Version 2)
Quarter: 2014Q2

REPORT INFORMATION
  Report Type: Spontaneous
  Country: US (occurrence: US)
  Receive Date: 20140605
  Receipt Date: 20140605
  Transmission Date: 20141212
  Serious: Yes (Hospitalization, Other)
  Sender: FDA-Public Use
  Company Number: 2014SP001375

PATIENT
  Age: 68 Year
  Sex: Female

DRUGS (6)
  1. CISPLATIN [Suspect]
     Indication: BLADDER CANCER
     Route: 042
     Dates: start: 20140122
  2. GEMCITABINE [Suspect]
     Indication: BLADDER CANCER
     Route: 042
     Dates: start: 20140122
  3. PARACETAMOL [Concomitant]
  4. OXYCODONE [Concomitant]
  5. SANCUSO [Concomitant]
  6. ONDANSETRON [Concomitant]

REACTIONS (10)
  - Deep vein thrombosis [Recovered/Resolved]
  - Pain [Recovered/Resolved]
  - Peripheral swelling [Recovered/Resolved]
  - Deep vein thrombosis [Not Recovered/Not Resolved]
  - Oedema [Unknown]
  - Pulmonary embolism [Not Recovered/Not Resolved]
  - Dyspnoea [Unknown]
  - Urinary tract infection [Not Recovered/Not Resolved]
  - Anaemia [Not Recovered/Not Resolved]
  - Haematuria [Not Recovered/Not Resolved]
